FAERS Safety Report 24412816 (Version 4)
Quarter: 2025Q4

REPORT INFORMATION
  Report Type: Report from Study
  Country: US (occurrence: US)
  Receive Date: 20241008
  Receipt Date: 20251010
  Transmission Date: 20260118
  Serious: Yes (Death, Other)
  Sender: JOHNSON AND JOHNSON
  Company Number: US-JNJFOC-20241000127

PATIENT

DRUGS (1)
  1. CARVYKTI [Suspect]
     Active Substance: CILTACABTAGENE AUTOLEUCEL
     Indication: Plasma cell myeloma refractory
     Route: 065

REACTIONS (10)
  - Cytokine release syndrome [Fatal]
  - Immune effector cell-associated neurotoxicity syndrome [Fatal]
  - Infection [Fatal]
  - Neurotoxicity [Fatal]
  - Second primary malignancy [Unknown]
  - Cytopenia [Unknown]
  - Facial paralysis [Unknown]
  - Parkinsonism [Unknown]
  - Acute myeloid leukaemia [Unknown]
  - Haemophagocytic lymphohistiocytosis [Unknown]
